FAERS Safety Report 18488344 (Version 3)
Quarter: 2020Q4

REPORT INFORMATION
  Report Type: Spontaneous
  Country: KZ (occurrence: KZ)
  Receive Date: 20201111
  Receipt Date: 20201126
  Transmission Date: 20210114
  Serious: Yes (Other)
  Sender: FDA-Public Use
  Company Number: KZ-B.I. PHARMACEUTICALS,INC./RIDGEFIELD-2020-BI-059700

PATIENT
  Age: 54 Year
  Sex: Male
  Weight: 85 kg

DRUGS (5)
  1. KETANOV [Suspect]
     Active Substance: KETOROLAC TROMETHAMINE
     Indication: BACK PAIN
     Dosage: 1 TABLET 10 MG 2-3 TIMES A DAY DEPENDING ON THE PAIN
     Route: 048
     Dates: start: 202009, end: 202010
  2. PRADAXA [Suspect]
     Active Substance: DABIGATRAN ETEXILATE MESYLATE
     Indication: ANTICOAGULANT THERAPY
     Route: 048
     Dates: start: 20200902
  3. PRADAXA [Suspect]
     Active Substance: DABIGATRAN ETEXILATE MESYLATE
     Route: 048
  4. OMEZ [OMEPRAZOLE] [Concomitant]
     Active Substance: OMEPRAZOLE
     Indication: GASTROOESOPHAGEAL REFLUX DISEASE
     Route: 048
  5. NEFROLES [Concomitant]
     Indication: PYELONEPHRITIS CHRONIC
     Dosage: 5 ML 3 TIMES A DAY
     Route: 048

REACTIONS (2)
  - Chromaturia [Recovered/Resolved]
  - Blood urine present [Recovered/Resolved]

NARRATIVE: CASE EVENT DATE: 202009
